FAERS Safety Report 10549343 (Version 1)
Quarter: 2014Q4

REPORT INFORMATION
  Report Type: Spontaneous
  Country: US (occurrence: None)
  Receive Date: 20141016
  Receipt Date: 20141016
  Transmission Date: 20150529
  Serious: No
  Sender: FDA-Public Use
  Company Number: CABO-14004497

PATIENT
  Age: 56 Year
  Sex: Male

DRUGS (4)
  1. OXYCODONE (OXYCODONE) [Concomitant]
     Active Substance: OXYCODONE
  2. OXYCONTIN [Concomitant]
     Active Substance: OXYCODONE HYDROCHLORIDE
  3. COMETRIQ [Suspect]
     Active Substance: CABOZANTINIB S-MALATE
     Indication: THYROID CANCER
     Route: 048
     Dates: start: 20140624, end: 20140717
  4. OMEPRAZOLE (OMEPRAZOLE) [Concomitant]
     Active Substance: OMEPRAZOLE

REACTIONS (19)
  - Eye pain [None]
  - Glossodynia [None]
  - Dysgeusia [None]
  - Hair colour changes [None]
  - Flatulence [None]
  - Abdominal distension [None]
  - Constipation [None]
  - Nasal discomfort [None]
  - Dysphonia [None]
  - Diarrhoea [None]
  - Paraesthesia [None]
  - Blister [None]
  - Decreased appetite [None]
  - Fatigue [None]
  - Stomatitis [None]
  - Stomach mass [None]
  - Blood pressure increased [None]
  - Headache [None]
  - Hypertension [None]

NARRATIVE: CASE EVENT DATE: 2014
